FAERS Safety Report 17746302 (Version 2)
Quarter: 2020Q4

REPORT INFORMATION
  Report Type: Spontaneous
  Country: US (occurrence: US)
  Receive Date: 20200505
  Receipt Date: 20201103
  Transmission Date: 20210113
  Serious: No
  Sender: FDA-Public Use
  Company Number: US-BLUEPRINT MEDICINES CORPORATION-SP-US-2020-000474

PATIENT
  Sex: Male

DRUGS (3)
  1. AYVAKIT [Suspect]
     Active Substance: AVAPRITINIB
     Dosage: DOSE CHANGE HAPPENED A MONTH AGO
     Route: 048
     Dates: start: 202009
  2. AYVAKIT [Suspect]
     Active Substance: AVAPRITINIB
     Indication: GASTROINTESTINAL STROMAL TUMOUR
     Route: 048
     Dates: start: 20200219
  3. AYVAKIT [Suspect]
     Active Substance: AVAPRITINIB
     Dosage: ALTERNATING WITH 200MG EVERY OTHER DAY
     Route: 048
     Dates: start: 20200219

REACTIONS (9)
  - Nasal congestion [Unknown]
  - Lacrimation increased [Unknown]
  - Eye infection [Unknown]
  - Drug intolerance [Unknown]
  - Sticky skin [Unknown]
  - Rhinorrhoea [Unknown]
  - Eye discharge [Unknown]
  - Mucosal disorder [Unknown]
  - Off label use [Unknown]
